FAERS Safety Report 15801127 (Version 1)
Quarter: 2019Q1

REPORT INFORMATION
  Report Type: Spontaneous
  Country: US (occurrence: US)
  Receive Date: 20190109
  Receipt Date: 20190109
  Transmission Date: 20190417
  Serious: No
  Sender: FDA-Public Use
  Company Number: US-AUROBINDO-AUR-APU-2018-047965

PATIENT
  Sex: Female
  Weight: 90 kg

DRUGS (2)
  1. FLUOXETINE [Concomitant]
     Active Substance: FLUOXETINE HYDROCHLORIDE
     Indication: MENTAL DISORDER
     Dosage: 1 DOSAGE FORM, DAILY
     Route: 065
     Dates: start: 20180730
  2. FAMOTIDINE TABLETS 40MG [Suspect]
     Active Substance: FAMOTIDINE
     Indication: PRENATAL CARE
     Route: 065

REACTIONS (4)
  - Irritability [Unknown]
  - Exposure during pregnancy [Unknown]
  - Medication error [Unknown]
  - Depression [Unknown]
